FAERS Safety Report 23830115 (Version 4)
Quarter: 2024Q3

REPORT INFORMATION
  Report Type: Report from Study
  Country: IL (occurrence: IL)
  Receive Date: 20240508
  Receipt Date: 20240710
  Transmission Date: 20241017
  Serious: Yes (Hospitalization, Other)
  Sender: NOVARTIS
  Company Number: IL-002147023-NVSC2024IL080814

PATIENT
  Age: 50 Year
  Sex: Female

DRUGS (2)
  1. KISQALI [Suspect]
     Active Substance: RIBOCICLIB
     Indication: Breast cancer metastatic
     Dosage: 600 MG, QD
     Route: 048
     Dates: start: 20230227
  2. KISQALI [Suspect]
     Active Substance: RIBOCICLIB
     Dosage: 600 MG, QD
     Route: 048
     Dates: start: 20240227

REACTIONS (8)
  - Cellulitis [Not Recovered/Not Resolved]
  - Erythema [Unknown]
  - Feeling hot [Unknown]
  - Skin ulcer [Unknown]
  - Clostridium bacteraemia [Not Recovered/Not Resolved]
  - Pseudomonas infection [Unknown]
  - Pyrexia [Recovered/Resolved]
  - Productive cough [Recovering/Resolving]
